FAERS Safety Report 14198849 (Version 2)
Quarter: 2018Q1

REPORT INFORMATION
  Report Type: Spontaneous
  Country: US (occurrence: US)
  Receive Date: 20171117
  Receipt Date: 20180130
  Transmission Date: 20180508
  Serious: No
  Sender: FDA-Public Use
  Company Number: US-PFIZER INC-2017493034

PATIENT
  Age: 45 Year
  Sex: Female
  Weight: 58.96 kg

DRUGS (1)
  1. XELJANZ [Suspect]
     Active Substance: TOFACITINIB CITRATE
     Indication: RHEUMATOID ARTHRITIS
     Dosage: 5 MG, 2X/DAY
     Route: 048
     Dates: start: 201703

REACTIONS (5)
  - Fatigue [Unknown]
  - Pain [Unknown]
  - Chills [Unknown]
  - Myalgia [Unknown]
  - Inflammation [Unknown]
